FAERS Safety Report 4520806-8 (Version None)
Quarter: 2004Q4

REPORT INFORMATION
  Report Type: 
  Country: None (occurrence: None)
  Receive Date: 20041028
  Receipt Date: 20040714
  Transmission Date: 20050328
  Serious: Yes (Other)
  Sender: FDA-Public Use
  Company Number: HQWYE289221JUL04

PATIENT
  Age: 54 Year
  Sex: Female

DRUGS (2)
  1. PREMARIN [Suspect]
     Indication: OESTROGEN REPLACEMENT THERAPY
     Dates: start: 19770101, end: 19960101
  2. ESTRADERM [Suspect]
     Indication: OESTROGEN REPLACEMENT THERAPY
     Dates: start: 19960101, end: 20010101

REACTIONS (1)
  - BREAST CANCER [None]
